FAERS Safety Report 4808860-7 (Version None)
Quarter: 2005Q4

REPORT INFORMATION
  Report Type: 
  Country: None (occurrence: None)
  Receive Date: 20051021
  Receipt Date: 20031006
  Transmission Date: 20060501
  Serious: No
  Sender: FDA-Public Use
  Company Number: DE_030912075

PATIENT
  Age: 16 Year
  Sex: Male
  Weight: 76 kg

DRUGS (1)
  1. ZYPREXA [Suspect]
     Indication: PSYCHOTIC DISORDER
     Dosage: 10 MG/DAY
     Dates: start: 20030723

REACTIONS (5)
  - ASPARTATE AMINOTRANSFERASE INCREASED [None]
  - BLOOD CREATINE PHOSPHOKINASE [None]
  - BLOOD LACTATE DEHYDROGENASE INCREASED [None]
  - NEUTROPENIA [None]
  - TREMOR [None]
